FAERS Safety Report 26059425 (Version 1)
Quarter: 2025Q4

REPORT INFORMATION
  Report Type: Spontaneous
  Country: US (occurrence: None)
  Receive Date: 20251117
  Receipt Date: 20251117
  Transmission Date: 20260117
  Serious: Yes (Hospitalization)
  Sender: FDA-CTU
  Company Number: None

PATIENT
  Sex: Male

DRUGS (12)
  1. LENALIDOMIDE [Suspect]
     Active Substance: LENALIDOMIDE
     Indication: Plasma cell myeloma
     Dosage: TAKE 1 CAPSULE (25 MG TOTAL) BY MOUTH DAILY FOR 14 DAYS, FOLLOWED BY 7 DAY REST PERIOD.
     Route: 048
     Dates: start: 20251022
  2. DEXAMETHASONE [Suspect]
     Active Substance: DEXAMETHASONE
  3. ACETAMIN TAB 500MG [Concomitant]
  4. ACYCLOVIR [Concomitant]
     Active Substance: ACYCLOVIR
  5. ALPRAZOLAM TAB 0.5MG [Concomitant]
  6. ATORVASTATIN [Concomitant]
     Active Substance: ATORVASTATIN
  7. BACTRIM DS [Concomitant]
     Active Substance: SULFAMETHOXAZOLE\TRIMETHOPRIM
  8. BENZONATATE CAP 200MG [Concomitant]
  9. DEXAMETHASONE [Concomitant]
     Active Substance: DEXAMETHASONE
  10. ENOXAPARIN INJ 80/0.SML [Concomitant]
  11. METAMUCIL CAP 400MG [Concomitant]
  12. METOPROL TAR TAB 25MG [Concomitant]

REACTIONS (2)
  - Infection [None]
  - Therapy interrupted [None]
